FAERS Safety Report 23166992 (Version 1)
Quarter: 2023Q4

REPORT INFORMATION
  Report Type: Spontaneous
  Country: CN (occurrence: CN)
  Receive Date: 20231109
  Receipt Date: 20231109
  Transmission Date: 20240109
  Serious: Yes (Other)
  Sender: FDA-Public Use
  Company Number: CN-PFIZER INC-PV202300182026

PATIENT
  Age: 57 Year
  Sex: Male
  Weight: 68.7 kg

DRUGS (3)
  1. METHYLPREDNISOLONE [Suspect]
     Active Substance: METHYLPREDNISOLONE
     Indication: Symptomatic treatment
     Dosage: 40 MG, 1X/DAY
     Route: 048
     Dates: start: 20230809, end: 20231010
  2. METHYLPREDNISOLONE [Suspect]
     Active Substance: METHYLPREDNISOLONE
     Dosage: 24 MG, 1X/DAY
     Route: 048
     Dates: start: 202310
  3. CORDYCEPS SINENSIS [Concomitant]
     Indication: Symptomatic treatment
     Dosage: 0.75 G, 3X/DAY
     Route: 048
     Dates: start: 20230809, end: 20231011

REACTIONS (1)
  - Gastritis haemorrhagic [Recovered/Resolved]

NARRATIVE: CASE EVENT DATE: 20231013
